FAERS Safety Report 19590195 (Version 4)
Quarter: 2021Q3

REPORT INFORMATION
  Report Type: Report from Study
  Country: DE (occurrence: DE)
  Receive Date: 20210721
  Receipt Date: 20210920
  Transmission Date: 20211014
  Serious: Yes (Hospitalization, Other)
  Sender: FDA-Public Use
  Company Number: DE-MYLANLABS-2021M1043650

PATIENT
  Sex: Female
  Weight: 106 kg

DRUGS (10)
  1. KISQALI [Suspect]
     Active Substance: RIBOCICLIB
     Dosage: 600 MG (DAILY DOSE) (SCHEMA 21 DAYS INTAKE, 7 DAYS PAUSE)
     Route: 048
     Dates: start: 20210118
  2. BISOPROLOL [Concomitant]
     Active Substance: BISOPROLOL
     Indication: HYPERTENSION
     Dosage: 5 UNK (AT LEAST SINCE 02 NOV 2020)
     Route: 048
     Dates: start: 2013
  3. LETROZOLE. [Suspect]
     Active Substance: LETROZOLE
     Indication: BREAST CANCER METASTATIC
     Dosage: 2.5 MG QD (DAILY DOSE)
     Route: 048
     Dates: start: 20200626
  4. DECODERM TRI                       /01263901/ [Concomitant]
     Indication: PRODUCT USED FOR UNKNOWN INDICATION
     Dosage: UNK
     Route: 065
  5. AMLODIPINE [Concomitant]
     Active Substance: AMLODIPINE BESYLATE
     Indication: HYPERTENSION
     Dosage: 320 MG (2X 160 MG) (AT LEAST SINCE 02 NOV 2020)
     Route: 048
  6. PANTOZOL [Concomitant]
     Active Substance: PANTOPRAZOLE SODIUM
     Indication: PRODUCT USED FOR UNKNOWN INDICATION
     Dosage: 40 MG (AT LEAST SINCE 02 NOV 2020)
     Route: 048
  7. BISOPROLOL /HCTZ [Concomitant]
     Active Substance: BISOPROLOL FUMARATE\HYDROCHLOROTHIAZIDE
     Indication: HYPERTENSION
     Dosage: 5 UNK (AT LEAST SINCE 02 NOV 2020)
     Route: 048
  8. KISQALI [Suspect]
     Active Substance: RIBOCICLIB
     Indication: BREAST CANCER METASTATIC
     Dosage: 600 MG, (DAILY DOSE) (SCHEMA 21 DAYS INTAKE, 7 DAYS PAUSE)
     Route: 048
     Dates: start: 20200713
  9. DECODERM TRI                       /01263901/ [Concomitant]
     Dosage: PEA SIZED AMOUNT, ON THE SKIN)
     Route: 065
     Dates: start: 20201102, end: 202012
  10. VALSARTAN. [Concomitant]
     Active Substance: VALSARTAN
     Indication: HYPERTENSION
     Dosage: 10 MG (2X 5 MG) (AT LEAST SINCE 02 NOV 2020)
     Route: 048

REACTIONS (9)
  - Lymphoedema [Recovered/Resolved with Sequelae]
  - Iron deficiency [Recovered/Resolved]
  - Procedural pain [Not Recovered/Not Resolved]
  - Movement disorder [Recovered/Resolved with Sequelae]
  - Neoplasm progression [Not Recovered/Not Resolved]
  - Iron deficiency anaemia [Recovered/Resolved]
  - Pain [Recovered/Resolved with Sequelae]
  - Erysipelas [Recovered/Resolved]
  - Hypocalcaemia [Unknown]

NARRATIVE: CASE EVENT DATE: 2020
